FAERS Safety Report 14807212 (Version 3)
Quarter: 2018Q3

REPORT INFORMATION
  Report Type: Spontaneous
  Country: US (occurrence: US)
  Receive Date: 20180425
  Receipt Date: 20180824
  Transmission Date: 20181010
  Serious: Yes (Death, Hospitalization)
  Sender: FDA-Public Use
  Company Number: US-ACTELION-A-NJ2018-171245

PATIENT
  Age: 66 Year
  Sex: Male
  Weight: 85.26 kg

DRUGS (1)
  1. OPSUMIT [Suspect]
     Active Substance: MACITENTAN
     Indication: PULMONARY ARTERIAL HYPERTENSION
     Dosage: 10 MG, QD
     Route: 048

REACTIONS (9)
  - Decreased appetite [Unknown]
  - Biliary colic [Unknown]
  - Death [Fatal]
  - Hypersomnia [Unknown]
  - Dyspnoea [Unknown]
  - Fatigue [Unknown]
  - Cholelithiasis [Unknown]
  - Pneumonia [Unknown]
  - General physical health deterioration [Unknown]

NARRATIVE: CASE EVENT DATE: 20180811
